FAERS Safety Report 15451018 (Version 1)
Quarter: 2018Q3

REPORT INFORMATION
  Report Type: Spontaneous
  Country: US (occurrence: US)
  Receive Date: 20180927
  Receipt Date: 20180927
  Transmission Date: 20181010
  Serious: Yes (Hospitalization)
  Sender: FDA-Public Use
  Company Number: None

PATIENT
  Sex: Female

DRUGS (13)
  1. VENTOLIN HFA [Concomitant]
     Active Substance: ALBUTEROL SULFATE
  2. CYCLOSPORINE MODIFIED [Suspect]
     Active Substance: CYCLOSPORINE
     Indication: RENAL TRANSPLANT
     Route: 048
     Dates: start: 20120804
  3. ALPRAZOLAM 1MG [Concomitant]
     Active Substance: ALPRAZOLAM
  4. BACLOFEN 20MG [Concomitant]
     Active Substance: BACLOFEN
  5. FISH OIL 1000MG [Concomitant]
  6. MYCOPHENOLATE 500MG [Concomitant]
     Active Substance: MYCOPHENOLIC ACID
  7. BUMETANIDE 2MG [Concomitant]
  8. OMEPRAZOLE 20MG [Concomitant]
     Active Substance: OMEPRAZOLE
  9. ALLOPURINOL 100MG [Concomitant]
     Active Substance: ALLOPURINOL
  10. FLUTICASONE SPR 50MCG [Concomitant]
  11. METOPROLOL 25MG ER [Concomitant]
     Active Substance: METOPROLOL
  12. CLONIDINE 0.2MG [Concomitant]
  13. CALCIUM D [Concomitant]
     Active Substance: CALCIUM\VITAMIN D

REACTIONS (2)
  - Pyrexia [None]
  - Hypertension [None]
